FAERS Safety Report 8714192 (Version 2)
Quarter: 2013Q2

REPORT INFORMATION
  Report Type: Report from Study
  Country: GB (occurrence: GB)
  Receive Date: 20120809
  Receipt Date: 20130424
  Transmission Date: 20140414
  Serious: Yes (Death, Other)
  Sender: FDA-Public Use
  Company Number: GB-AMGEN-GBRCT2012049377

PATIENT
  Age: 81 Year
  Sex: Female
  Weight: 62 kg

DRUGS (5)
  1. ETANERCEPT [Suspect]
     Indication: PRODUCT USED FOR UNKNOWN INDICATION
     Dosage: 50 MG, QWK
     Dates: start: 20110728
  2. CICLOSPORIN [Concomitant]
     Dosage: UNK
     Dates: start: 20101215
  3. FOLIC ACID [Concomitant]
     Dosage: UNK
     Dates: start: 20090101
  4. PARACETAMOL [Concomitant]
     Dosage: UNK
     Dates: start: 20090101
  5. COD-LIVER OIL [Concomitant]
     Dosage: UNK

REACTIONS (2)
  - Hepatic cancer [Not Recovered/Not Resolved]
  - Death [Fatal]
